FAERS Safety Report 9164371 (Version 1)
Quarter: 2013Q1

REPORT INFORMATION
  Report Type: Spontaneous
  Country: US (occurrence: None)
  Receive Date: 20130215
  Receipt Date: 20130215
  Transmission Date: 20140127
  Serious: Yes (Other)
  Sender: FDA-Public Use
  Company Number: UTC-029002

PATIENT
  Age: 49 Year
  Sex: Female
  Weight: 57.27 kg

DRUGS (5)
  1. REMODULIN [Suspect]
     Indication: PULMONARY ARTERIAL HYPERTENSION
     Dosage: 122.4 UG/KG  (0.085 UG/KG, 1 IN 1 MIN ), SUBCUTANEOUS
     Route: 058
     Dates: start: 20070206
  2. COUMADIN (WARFARIN SODIUM) [Concomitant]
  3. PLAVIX (CLOPIDOGREL) [Concomitant]
  4. DIGOXIN [Concomitant]
  5. MIDODRINE [Concomitant]

REACTIONS (4)
  - Infusion site abscess [None]
  - Sepsis [None]
  - Dialysis [None]
  - Bacterial test positive [None]
